FAERS Safety Report 4596283-8 (Version None)
Quarter: 2005Q1

REPORT INFORMATION
  Report Type: 
  Country: None (occurrence: None)
  Receive Date: 20050302
  Receipt Date: 20041202
  Transmission Date: 20050727
  Serious: Yes (Hospitalization, Other)
  Sender: FDA-Public Use
  Company Number: US-MERCK-0412USA00645

PATIENT
  Age: 56 Year
  Sex: Female
  Weight: 112 kg

DRUGS (9)
  1. VIOXX [Suspect]
     Indication: ARTHRITIS
     Route: 048
     Dates: start: 20010101
  2. VIOXX [Suspect]
     Route: 048
     Dates: end: 20040915
  3. VIOXX [Suspect]
     Indication: RHEUMATOID ARTHRITIS
     Route: 048
     Dates: start: 20010101
  4. VIOXX [Suspect]
     Route: 048
     Dates: end: 20040915
  5. SYNTHROID [Concomitant]
     Route: 048
  6. METHOTREXATE [Concomitant]
     Indication: RHEUMATOID ARTHRITIS
     Route: 048
     Dates: start: 19970901
  7. PREDNISONE [Concomitant]
     Route: 048
  8. NEXIUM [Concomitant]
     Route: 048
  9. ASPIRIN [Concomitant]
     Route: 048
     Dates: start: 20020801

REACTIONS (28)
  - ANGINA UNSTABLE [None]
  - ANGIOPATHY [None]
  - ANXIETY [None]
  - AORTIC ANEURYSM [None]
  - ASTHENIA [None]
  - ATELECTASIS [None]
  - BACK PAIN [None]
  - CAROTID ARTERY STENOSIS [None]
  - CEREBROVASCULAR ACCIDENT [None]
  - COMPRESSION FRACTURE [None]
  - CONSTIPATION [None]
  - CORONARY ARTERY DISEASE [None]
  - CORONARY ARTERY OCCLUSION [None]
  - DEPRESSION [None]
  - EMOTIONAL DISTRESS [None]
  - FATIGUE [None]
  - HYPERTENSION [None]
  - INTERVERTEBRAL DISC DEGENERATION [None]
  - LEFT VENTRICULAR END-DIASTOLIC PRESSURE INCREASED [None]
  - MYOCARDIAL INFARCTION [None]
  - OSTEOARTHRITIS [None]
  - PAIN IN EXTREMITY [None]
  - SLEEP DISORDER [None]
  - SUBCLAVIAN ARTERY STENOSIS [None]
  - THERAPY NON-RESPONDER [None]
  - URINARY TRACT INFECTION [None]
  - VENTRICULAR DYSFUNCTION [None]
  - VENTRICULAR HYPOKINESIA [None]
